FAERS Safety Report 18648751 (Version 8)
Quarter: 2021Q3

REPORT INFORMATION
  Report Type: Spontaneous
  Country: CZ (occurrence: CZ)
  Receive Date: 20201222
  Receipt Date: 20210803
  Transmission Date: 20211014
  Serious: Yes (Hospitalization, Other)
  Sender: FDA-Public Use
  Company Number: CZ-MYLANLABS-2020M1103162

PATIENT
  Age: 41 Year
  Sex: Female
  Weight: 106 kg

DRUGS (12)
  1. OLANZAPINE. [Concomitant]
     Active Substance: OLANZAPINE
     Indication: SCHIZOPHRENIA
     Dosage: UNK
     Route: 048
  2. QUETIAPINE. [Suspect]
     Active Substance: QUETIAPINE
     Indication: SCHIZOPHRENIA
     Dosage: 300 MILLIGRAM, QD
     Route: 065
  3. LURASIDONE [Suspect]
     Active Substance: LURASIDONE
     Dosage: 37 MILLIGRAM, QD
     Route: 065
  4. DESLORATADINE. [Concomitant]
     Active Substance: DESLORATADINE
     Indication: SEASONAL ALLERGY
     Dosage: 5 MILLIGRAM, QD
     Route: 065
  5. LURASIDONE [Suspect]
     Active Substance: LURASIDONE
     Indication: SCHIZOPHRENIA
     Dosage: 111 MILLIGRAM, QD
     Route: 065
  6. HALOPERIDOL. [Suspect]
     Active Substance: HALOPERIDOL
     Dosage: 10 MILLIGRAM, QD
     Route: 030
  7. DESLORATADINE. [Concomitant]
     Active Substance: DESLORATADINE
     Dosage: 5 MILLIGRAM
  8. BIPERIDEN                          /00079502/ [Concomitant]
     Active Substance: BIPERIDEN HYDROCHLORIDE
     Indication: AKATHISIA
     Dosage: UNK
  9. HALOPERIDOL. [Suspect]
     Active Substance: HALOPERIDOL
     Indication: SCHIZOPHRENIA
     Dosage: 6 MILLIGRAM, QD
  10. LEVOTHYROXINE. [Concomitant]
     Active Substance: LEVOTHYROXINE
     Indication: HYPOTHYROIDISM
     Dosage: UNK
     Route: 065
  11. BIPERIDEN                          /00079502/ [Concomitant]
     Active Substance: BIPERIDEN HYDROCHLORIDE
     Indication: ANXIETY
  12. LURASIDONE [Suspect]
     Active Substance: LURASIDONE
     Dosage: 92.5 MILLIGRAM

REACTIONS (17)
  - Stupor [Recovered/Resolved]
  - Mutism [Recovered/Resolved]
  - Akathisia [Recovered/Resolved]
  - Sleep disorder [Unknown]
  - Dysphoria [Recovered/Resolved]
  - Weight increased [Unknown]
  - Intentional product misuse [Unknown]
  - Therapeutic product effect incomplete [Unknown]
  - Low density lipoprotein increased [Unknown]
  - Obesity [Unknown]
  - Hyperprolactinaemia [Recovered/Resolved]
  - Hallucination, visual [Recovered/Resolved]
  - Affect lability [Recovered/Resolved]
  - Illogical thinking [Recovered/Resolved]
  - Depressive delusion [Recovered/Resolved]
  - Delusion [Recovered/Resolved]
  - Irritability [Recovered/Resolved]
